FAERS Safety Report 4528808-2 (Version None)
Quarter: 2004Q4

REPORT INFORMATION
  Report Type: 
  Country: None (occurrence: None)
  Receive Date: 20041216
  Receipt Date: 20041105
  Transmission Date: 20050328
  Serious: Yes (Other)
  Sender: FDA-Public Use
  Company Number: CA-GLAXOSMITHKLINE-A0532877A

PATIENT
  Age: 76 Year
  Sex: Male

DRUGS (6)
  1. PAXIL [Suspect]
     Indication: DEPRESSION
     Dosage: 20MG PER DAY
     Route: 048
     Dates: start: 20031007, end: 20040109
  2. FEMALE HORMONE [Concomitant]
     Indication: PROSTATE CANCER
     Route: 065
  3. DITROPAN [Concomitant]
     Indication: BLADDER DISORDER
     Dosage: 10MG PER DAY
     Route: 048
     Dates: start: 20040215
  4. INSULIN [Concomitant]
     Indication: DIABETES MELLITUS
     Dosage: 34U PER DAY
     Route: 058
     Dates: start: 20020201
  5. WELLBUTRIN [Concomitant]
     Indication: DEPRESSION
     Dosage: 150MG PER DAY
     Route: 048
     Dates: start: 20031218
  6. UNSPECIFIED DRUG [Concomitant]
     Indication: DEMENTIA ALZHEIMER'S TYPE

REACTIONS (3)
  - AMNESIA [None]
  - DEMENTIA ALZHEIMER'S TYPE [None]
  - SUICIDAL IDEATION [None]
